FAERS Safety Report 4367679-4 (Version None)
Quarter: 2004Q2

REPORT INFORMATION
  Report Type: 
  Country: None (occurrence: None)
  Receive Date: 20040601
  Receipt Date: 20040520
  Transmission Date: 20050107
  Serious: Yes (Other)
  Sender: FDA-Public Use
  Company Number: 12582441

PATIENT
  Age: 28 Year
  Sex: Female

DRUGS (3)
  1. LAMIVUDINE [Suspect]
     Indication: HIV INFECTION
     Dates: start: 20040315
  2. STAVUDINE [Suspect]
     Indication: HIV INFECTION
     Dates: start: 20040315
  3. NEVIRAPINE [Suspect]
     Indication: HIV INFECTION
     Dates: start: 20040315

REACTIONS (5)
  - ABDOMINAL PAIN [None]
  - FATIGUE [None]
  - GAMMA-GLUTAMYLTRANSFERASE INCREASED [None]
  - JAUNDICE [None]
  - PRURITUS GENERALISED [None]
